FAERS Safety Report 4688636-4 (Version None)
Quarter: 2005Q2

REPORT INFORMATION
  Report Type: 
  Country: None (occurrence: None)
  Receive Date: 20050608
  Receipt Date: 20050203
  Transmission Date: 20051028
  Serious: No
  Sender: FDA-Public Use
  Company Number: 2005-BP-01150BP

PATIENT
  Age: 87 Year
  Sex: Female

DRUGS (3)
  1. SPIRIVA [Suspect]
     Indication: ASTHMA
     Dosage: 18 MCG (18 MCG, 1 IN 1 D), IH
     Route: 055
     Dates: start: 20050112
  2. MUCINEX (GUAIFENESIN) [Concomitant]
  3. TYLENOL [Concomitant]

REACTIONS (1)
  - DYSPHONIA [None]
